FAERS Safety Report 14639189 (Version 1)
Quarter: 2018Q1

REPORT INFORMATION
  Report Type: Spontaneous
  Country: US (occurrence: US)
  Receive Date: 20180315
  Receipt Date: 20180315
  Transmission Date: 20180509
  Serious: No
  Sender: FDA-Public Use
  Company Number: US-ENDO PHARMACEUTICALS INC-2017-003345

PATIENT
  Age: 78 Year
  Sex: Female

DRUGS (4)
  1. OTC ALLERGY DRUG [Concomitant]
     Indication: PRODUCT USED FOR UNKNOWN INDICATION
  2. PRIMIDONE TABLETS 50MG [Suspect]
     Active Substance: PRIMIDONE
     Indication: TREMOR
     Dosage: 1 DF, OD
     Route: 048
  3. PRIMIDONE TABLETS 50MG [Suspect]
     Active Substance: PRIMIDONE
     Dosage: 1 DF, BID
     Route: 048
  4. BYSTOLIC [Concomitant]
     Active Substance: NEBIVOLOL HYDROCHLORIDE
     Indication: BLOOD PRESSURE ABNORMAL

REACTIONS (4)
  - Fatigue [Unknown]
  - Drug effect incomplete [Unknown]
  - Off label use [Unknown]
  - Dizziness [Not Recovered/Not Resolved]

NARRATIVE: CASE EVENT DATE: 20170528
